FAERS Safety Report 9262538 (Version 1)
Quarter: 2013Q2

REPORT INFORMATION
  Report Type: Spontaneous
  Country: US (occurrence: US)
  Receive Date: 20130430
  Receipt Date: 20130430
  Transmission Date: 20140414
  Serious: Yes (Hospitalization)
  Sender: FDA-Public Use
  Company Number: US-BAYER-2013-052051

PATIENT
  Age: 22 Year
  Sex: Female
  Weight: 117.7 kg

DRUGS (4)
  1. YAZ [Suspect]
  2. GIANVI [Suspect]
  3. VICODIN [Concomitant]
     Indication: PAIN
     Dosage: UNK UNK, PRN
  4. SENOKOT S [Concomitant]
     Indication: CONSTIPATION

REACTIONS (1)
  - Pulmonary embolism [None]
